FAERS Safety Report 18425265 (Version 1)
Quarter: 2020Q4

REPORT INFORMATION
  Report Type: Spontaneous
  Country: US (occurrence: US)
  Receive Date: 20201023
  Receipt Date: 20201023
  Transmission Date: 20210114
  Serious: Yes (Hospitalization)
  Sender: FDA-Public Use
  Company Number: None

PATIENT
  Age: 47 Year
  Sex: Female
  Weight: 81 kg

DRUGS (11)
  1. LAMICTAL [Concomitant]
     Active Substance: LAMOTRIGINE
  2. MVI [Concomitant]
     Active Substance: VITAMINS
  3. AMBIEN [Concomitant]
     Active Substance: ZOLPIDEM TARTRATE
  4. LEMON BALM [Concomitant]
     Active Substance: HERBALS\MELISSA OFFICINALIS
  5. WELLBUTRIN [Suspect]
     Active Substance: BUPROPION HYDROCHLORIDE
  6. MELATONIN [Concomitant]
     Active Substance: MELATONIN
  7. XANAX [Concomitant]
     Active Substance: ALPRAZOLAM
  8. VITAMIN D3 [Concomitant]
     Active Substance: CHOLECALCIFEROL
  9. AMBIEN [Suspect]
     Active Substance: ZOLPIDEM TARTRATE
     Indication: DEPRESSION
     Dates: start: 20201017, end: 20201018
  10. VITAMIN C [Concomitant]
     Active Substance: ASCORBIC ACID
  11. ZINC. [Concomitant]
     Active Substance: ZINC

REACTIONS (7)
  - Amnesia [None]
  - Agitation [None]
  - Tachycardia [None]
  - Chest pain [None]
  - Aggression [None]
  - Depressed level of consciousness [None]
  - Sedation [None]

NARRATIVE: CASE EVENT DATE: 20201018
